FAERS Safety Report 16840687 (Version 1)
Quarter: 2019Q3

REPORT INFORMATION
  Report Type: Spontaneous
  Country: SK (occurrence: SK)
  Receive Date: 20190923
  Receipt Date: 20190923
  Transmission Date: 20191005
  Serious: Yes (Other)
  Sender: FDA-Public Use
  Company Number: SK-MYLANLABS-2019M1088480

PATIENT
  Sex: Male

DRUGS (3)
  1. LEXAURIN [Concomitant]
     Active Substance: BROMAZEPAM
     Dosage: UNK, BID
  2. ALCOHOL. [Concomitant]
     Active Substance: ALCOHOL
  3. PARETIN [Suspect]
     Active Substance: PAROXETINE HYDROCHLORIDE
     Indication: PRODUCT USED FOR UNKNOWN INDICATION

REACTIONS (1)
  - Drug abuse [Unknown]
